FAERS Safety Report 10024111 (Version 3)
Quarter: 2014Q2

REPORT INFORMATION
  Report Type: Spontaneous
  Country: US (occurrence: US)
  Receive Date: 20140320
  Receipt Date: 20140506
  Transmission Date: 20141212
  Serious: No
  Sender: FDA-Public Use
  Company Number: US-PFIZER INC-2014078623

PATIENT
  Age: 53 Year
  Sex: Female
  Weight: 58.5 kg

DRUGS (3)
  1. PREMARIN [Suspect]
     Indication: HORMONE REPLACEMENT THERAPY
     Dosage: UNK
     Route: 067
     Dates: start: 20140312, end: 201403
  2. PREMARIN [Suspect]
     Dosage: UNK
     Route: 067
     Dates: start: 201403, end: 201403
  3. PREMARIN [Suspect]
     Dosage: UNK
     Route: 067
     Dates: start: 201403, end: 20140316

REACTIONS (3)
  - Application site pruritus [Unknown]
  - Application site pain [Unknown]
  - Middle insomnia [Unknown]
